FAERS Safety Report 23646169 (Version 2)
Quarter: 2024Q2

REPORT INFORMATION
  Report Type: Spontaneous
  Country: US (occurrence: None)
  Receive Date: 20240319
  Receipt Date: 20240404
  Transmission Date: 20240715
  Serious: No
  Sender: FDA-Public Use
  Company Number: 2024A050157

PATIENT
  Sex: Male

DRUGS (1)
  1. CALQUENCE [Suspect]
     Active Substance: ACALABRUTINIB
     Indication: Mantle cell lymphoma
     Route: 048
     Dates: start: 20231118

REACTIONS (4)
  - Skin discolouration [Unknown]
  - Memory impairment [Unknown]
  - Lymphadenopathy [Recovered/Resolved]
  - Intentional product misuse [Unknown]
